FAERS Safety Report 11870446 (Version 1)
Quarter: 2015Q4

REPORT INFORMATION
  Report Type: Spontaneous
  Country: US (occurrence: US)
  Receive Date: 20151228
  Receipt Date: 20151228
  Transmission Date: 20160305
  Serious: No
  Sender: FDA-Public Use
  Company Number: US-SA-2015SA013566

PATIENT
  Sex: Male

DRUGS (2)
  1. PLAVIX [Suspect]
     Active Substance: CLOPIDOGREL BISULFATE
     Indication: CORONARY ARTERY DISEASE
     Route: 065
     Dates: start: 2005, end: 2015
  2. PLAVIX [Suspect]
     Active Substance: CLOPIDOGREL BISULFATE
     Indication: STENT PLACEMENT
     Route: 065
     Dates: start: 2005, end: 2015

REACTIONS (4)
  - Nasopharyngitis [Unknown]
  - Dizziness [Unknown]
  - Upper respiratory tract infection [Unknown]
  - Chest discomfort [Unknown]

NARRATIVE: CASE EVENT DATE: 2015
